FAERS Safety Report 6339016-7 (Version None)
Quarter: 2009Q3

REPORT INFORMATION
  Report Type: 
  Country: None (occurrence: None)
  Receive Date: 20090903
  Receipt Date: 20090828
  Transmission Date: 20100115
  Serious: Yes (Death, Hospitalization)
  Sender: FDA-Public Use
  Company Number: JP-BAYER-200912744BYL

PATIENT
  Age: 75 Year
  Sex: Male
  Weight: 53 kg

DRUGS (24)
  1. NEXAVAR [Suspect]
     Indication: HEPATIC NEOPLASM MALIGNANT
     Dosage: TOTAL DAILY DOSE: 800 MG  UNIT DOSE: 200 MG
     Route: 048
     Dates: start: 20090620, end: 20090717
  2. INSULIN [Concomitant]
     Dates: start: 20090719
  3. WHITE PETROLATUM [Concomitant]
     Indication: XEROSIS
     Route: 061
     Dates: start: 20090623, end: 20090623
  4. PARIET [Concomitant]
     Indication: GASTRITIS
     Dosage: BEFORE NEXAVAR ADMINISTRATION
     Route: 048
  5. LIVACT [Concomitant]
     Dosage: TOTAL DAILY DOSE: 12.45 G
     Route: 048
  6. VOLTAREN [Concomitant]
     Dosage: BEFORE NEXAVAR ADMINISTRATION
     Route: 048
  7. CYTOTEC [Concomitant]
     Dosage: BEFORE NEXAVAR ADMINISTRATION
     Route: 048
  8. DECADRON [Concomitant]
     Route: 048
     Dates: start: 20090627
  9. ALLOID G [Concomitant]
     Route: 048
     Dates: start: 20090707
  10. URSO 250 [Concomitant]
     Route: 048
     Dates: start: 20090710
  11. GASTER [Concomitant]
     Indication: GASTRITIS
     Route: 042
     Dates: start: 20090710, end: 20090801
  12. GASTER [Concomitant]
     Route: 048
     Dates: start: 20090718, end: 20090718
  13. DECADRON [Concomitant]
     Route: 042
     Dates: start: 20090626, end: 20090801
  14. ZOMETA [Concomitant]
     Route: 042
     Dates: start: 20090626, end: 20090801
  15. AMINOLEBAN [Concomitant]
     Route: 042
     Dates: start: 20090710, end: 20090801
  16. ALBUMINAR [Concomitant]
     Route: 042
     Dates: start: 20090718, end: 20090721
  17. BFLUID [Concomitant]
     Route: 042
     Dates: start: 20090710, end: 20090801
  18. VITAMEDIN [Concomitant]
     Route: 042
     Dates: start: 20090710, end: 20090801
  19. SOLDEM 1 [Concomitant]
     Route: 042
     Dates: start: 20090710, end: 20090801
  20. POTACOL-R [Concomitant]
     Route: 042
     Dates: start: 20090711, end: 20090801
  21. SOLDEM 3A [Concomitant]
     Route: 042
     Dates: start: 20090711, end: 20090801
  22. PRIMPERAN [Concomitant]
     Route: 042
     Dates: start: 20090715, end: 20090801
  23. KAYTWO N [Concomitant]
     Route: 048
     Dates: start: 20090718, end: 20090801
  24. NEOPAREN [Concomitant]
     Route: 042
     Dates: start: 20090719, end: 20090801

REACTIONS (5)
  - DECREASED APPETITE [None]
  - DIARRHOEA [None]
  - HEPATIC FUNCTION ABNORMAL [None]
  - INTERSTITIAL LUNG DISEASE [None]
  - PLATELET COUNT DECREASED [None]
